FAERS Safety Report 9129196 (Version 1)
Quarter: 2013Q1

REPORT INFORMATION
  Report Type: Spontaneous
  Country: IT (occurrence: IT)
  Receive Date: 20130125
  Receipt Date: 20130125
  Transmission Date: 20140127
  Serious: Yes (Death, Life-Threatening, Other)
  Sender: FDA-Public Use
  Company Number: IT-ROXANE LABORATORIES, INC.-2013-RO-00121RO

PATIENT
  Age: 23 Year
  Sex: Male

DRUGS (8)
  1. CLARITHROMYCIN [Suspect]
     Indication: OROPHARYNGEAL PAIN
     Route: 048
     Dates: start: 201106
  2. LITHIUM CARBONATE [Suspect]
     Indication: SCHIZOAFFECTIVE DISORDER
  3. AMISULPRIDE [Suspect]
     Indication: SCHIZOAFFECTIVE DISORDER
  4. ORPHENADRINE [Suspect]
     Indication: SCHIZOAFFECTIVE DISORDER
  5. FLUPHENAZINE DECANOATE [Suspect]
     Indication: SCHIZOAFFECTIVE DISORDER
  6. PARACETAMOL [Suspect]
     Indication: PYREXIA
  7. METOCLOPRAMIDE [Suspect]
     Indication: PYREXIA
  8. BUSCOPAN [Suspect]
     Indication: PYREXIA

REACTIONS (8)
  - Hepatitis fulminant [Fatal]
  - Liver injury [Unknown]
  - Subarachnoid haemorrhage [Unknown]
  - Hypotension [Unknown]
  - Respiratory gas exchange disorder [Unknown]
  - Oropharyngeal pain [Unknown]
  - Diarrhoea [Unknown]
  - Vomiting [Unknown]
